FAERS Safety Report 8405975-1 (Version None)
Quarter: 2012Q2

REPORT INFORMATION
  Report Type: 
  Country: None (occurrence: None)
  Receive Date: 20120604
  Receipt Date: 20120524
  Transmission Date: 20120825
  Serious: Yes (Other)
  Sender: FDA-Public Use
  Company Number: CA-JNJFOC-20120510391

PATIENT
  Sex: Male
  Weight: 57 kg

DRUGS (4)
  1. REMICADE [Suspect]
     Route: 042
     Dates: start: 20120510, end: 20120524
  2. SOLU-CORTEF [Concomitant]
     Indication: PREMEDICATION
     Route: 042
  3. REMICADE [Suspect]
     Indication: COLITIS
     Route: 042
     Dates: start: 20110511
  4. DESLORATADINE [Concomitant]
     Indication: PREMEDICATION
     Route: 048

REACTIONS (3)
  - HYPOAESTHESIA ORAL [None]
  - INFUSION RELATED REACTION [None]
  - LIP SWELLING [None]
